FAERS Safety Report 11847564 (Version 1)
Quarter: 2015Q4

REPORT INFORMATION
  Report Type: Spontaneous
  Country: US (occurrence: US)
  Receive Date: 20151217
  Receipt Date: 20151217
  Transmission Date: 20160305
  Serious: Yes (Death)
  Sender: FDA-Public Use
  Company Number: US-CELGENE-USA-2015121867

PATIENT

DRUGS (2)
  1. ENTINOSTAT [Suspect]
     Active Substance: ENTINOSTAT
     Indication: NEOPLASM
     Route: 048
  2. VIDAZA [Suspect]
     Active Substance: AZACITIDINE
     Indication: NEOPLASM
     Dosage: 50 MILLIGRAM/SQ. METER
     Route: 065

REACTIONS (1)
  - Infection [Fatal]
